FAERS Safety Report 4865361-8 (Version None)
Quarter: 2005Q4

REPORT INFORMATION
  Report Type: 
  Country: None (occurrence: None)
  Receive Date: 20051223
  Receipt Date: 20051220
  Transmission Date: 20060501
  Serious: Yes (Other)
  Sender: FDA-Public Use
  Company Number: US-BRISTOL-MYERS SQUIBB COMPANY-13224373

PATIENT
  Age: 42 Year
  Sex: Male
  Weight: 82 kg

DRUGS (1)
  1. ERBITUX [Suspect]
     Indication: COLORECTAL CANCER
     Dosage: REC'D ON 30-NOV-05, 06-DEC-05 AND THE LAST ON 14-DEC-05.
     Route: 042
     Dates: start: 20050101, end: 20050101

REACTIONS (1)
  - HEPATIC ENZYME INCREASED [None]
